FAERS Safety Report 4284104-2 (Version None)
Quarter: 2004Q1

REPORT INFORMATION
  Report Type: 
  Country: None (occurrence: None)
  Receive Date: 20040130
  Receipt Date: 20040116
  Transmission Date: 20041129
  Serious: Yes (Hospitalization)
  Sender: FDA-Public Use
  Company Number: 03P-163-0244852-00

PATIENT
  Age: 44 Year
  Sex: Male
  Weight: 51.3 kg

DRUGS (17)
  1. KALETRA [Suspect]
     Dosage: 6 CAPSULE, 1 IN 1 D
     Dates: start: 20031001
  2. NORVIR [Suspect]
     Indication: HIV INFECTION
     Dosage: PER ORAL
     Route: 048
     Dates: start: 20031001, end: 20031016
  3. T20 [Concomitant]
  4. TENOFOVIR [Concomitant]
  5. EMTRICITABINE [Concomitant]
  6. TESTOSTERONE [Concomitant]
  7. AZITHROMYCIN [Concomitant]
  8. METOCLOPRAMIDE [Concomitant]
  9. DARBEPOETIN ALFA [Concomitant]
  10. CHLORPROMAZINE HCL [Concomitant]
  11. CHROMAGEN FORTE [Concomitant]
  12. CARBAMAZEPINE [Concomitant]
  13. AMITRIPTYLINE HCL [Concomitant]
  14. METHADONE HCL [Concomitant]
  15. RABEPRAZOLE SODIUM [Concomitant]
  16. LACTULOSE [Concomitant]
  17. BACTRIM [Concomitant]

REACTIONS (11)
  - CONSTIPATION [None]
  - CYTOMEGALOVIRUS GASTRITIS [None]
  - DEHYDRATION [None]
  - DIARRHOEA [None]
  - HYPOXIA [None]
  - MALNUTRITION [None]
  - ODYNOPHAGIA [None]
  - OESOPHAGEAL CANDIDIASIS [None]
  - PNEUMOCYSTIS CARINII PNEUMONIA [None]
  - PSEUDOMONAL BACTERAEMIA [None]
  - SOMNOLENCE [None]
